FAERS Safety Report 9913591 (Version 1)
Quarter: 2014Q1

REPORT INFORMATION
  Report Type: Spontaneous
  Country: US (occurrence: None)
  Receive Date: 20140218
  Receipt Date: 20140218
  Transmission Date: 20141002
  Serious: Yes (Other)
  Sender: FDA-Public Use
  Company Number: 2014-00025

PATIENT
  Age: 35 Year
  Sex: Female
  Weight: 74.39 kg

DRUGS (1)
  1. ZICAM NATURALS [Suspect]
     Indication: INFLUENZA
     Route: 048
     Dates: start: 20140202

REACTIONS (8)
  - Drug ineffective [None]
  - Musculoskeletal stiffness [None]
  - Musculoskeletal stiffness [None]
  - Hypoaesthesia oral [None]
  - Muscle spasms [None]
  - Panic attack [None]
  - Pharyngeal oedema [None]
  - Drug hypersensitivity [None]
